FAERS Safety Report 10346544 (Version 2)
Quarter: 2014Q3

REPORT INFORMATION
  Report Type: Spontaneous
  Country: US (occurrence: US)
  Receive Date: 20140729
  Receipt Date: 20140909
  Transmission Date: 20150326
  Serious: Yes (Death, Life-Threatening, Hospitalization, Other)
  Sender: FDA-Public Use
  Company Number: US-ACTELION-A-US2014-102461

PATIENT
  Age: 56 Year
  Sex: Male

DRUGS (4)
  1. ADCIRCA [Concomitant]
     Active Substance: TADALAFIL
  2. VELETRI [Suspect]
     Active Substance: EPOPROSTENOL
     Indication: PULMONARY ARTERIAL HYPERTENSION
     Dosage: 40 NG/KG, PER MIN
     Route: 042
     Dates: start: 20140121, end: 20140719
  3. LETAIRIS [Concomitant]
     Active Substance: AMBRISENTAN
  4. TYVASO [Concomitant]
     Active Substance: TREPROSTINIL

REACTIONS (4)
  - Packed red blood cell transfusion [Not Recovered/Not Resolved]
  - Pulmonary arterial hypertension [Fatal]
  - Anaemia [Not Recovered/Not Resolved]
  - Disease progression [Unknown]
